FAERS Safety Report 5987526-4 (Version None)
Quarter: 2008Q4

REPORT INFORMATION
  Report Type: 
  Country: None (occurrence: None)
  Receive Date: 20081209
  Receipt Date: 20081128
  Transmission Date: 20090506
  Serious: Yes (Hospitalization)
  Sender: FDA-Public Use
  Company Number: FR-PFIZER INC-2008101316

PATIENT

DRUGS (7)
  1. XANAX [Suspect]
     Dosage: 0.5 MG, 1X/DAY
     Route: 048
     Dates: start: 20080801, end: 20080902
  2. ZOLPIDEM [Suspect]
     Indication: SLEEP DISORDER
     Dosage: 1 DF DAILY EVERY DAY TDD:1 DF
     Route: 048
  3. ESCITALOPRAM [Suspect]
     Indication: DEPRESSION
     Dosage: 1 DF DAILY EVERY DAY TDD:1 DF
     Route: 048
  4. BIPRETERAX [Suspect]
     Dosage: *4MG/1.25MG DAILY EVERY DAY TDD:4MG/1.25
     Route: 048
  5. PRAVASTATIN [Concomitant]
  6. ACETAMINOPHEN [Concomitant]
  7. MACROGOL [Concomitant]

REACTIONS (1)
  - FALL [None]
